FAERS Safety Report 14683102 (Version 1)
Quarter: 2018Q1

REPORT INFORMATION
  Report Type: Spontaneous
  Country: US (occurrence: US)
  Receive Date: 20180327
  Receipt Date: 20180327
  Transmission Date: 20180509
  Serious: No
  Sender: FDA-Public Use
  Company Number: US-AUROBINDO-AUR-APU-2017-35446

PATIENT
  Sex: Female

DRUGS (2)
  1. AMITRIPTYLINE [Concomitant]
     Active Substance: AMITRIPTYLINE
     Indication: PRODUCT USED FOR UNKNOWN INDICATION
     Route: 065
  2. GABAPENTIN. [Suspect]
     Active Substance: GABAPENTIN
     Indication: NEUROPATHY PERIPHERAL
     Dosage: TWO TIMES A DAY
     Route: 065

REACTIONS (7)
  - Drug ineffective for unapproved indication [Unknown]
  - Muscle spasms [Unknown]
  - Feeling abnormal [Unknown]
  - Restlessness [Unknown]
  - Drooling [Unknown]
  - Pain [Unknown]
  - Paraesthesia [Unknown]
